FAERS Safety Report 20539482 (Version 1)
Quarter: 2022Q1

REPORT INFORMATION
  Report Type: Spontaneous
  Country: JP (occurrence: JP)
  Receive Date: 20220302
  Receipt Date: 20220302
  Transmission Date: 20220423
  Serious: Yes (Hospitalization, Other)
  Sender: FDA-Public Use
  Company Number: JP-JNJFOC-20211055841

PATIENT
  Age: 61 Year
  Sex: Male
  Weight: 100 kg

DRUGS (2)
  1. INVEGA [Suspect]
     Active Substance: PALIPERIDONE
     Indication: Product used for unknown indication
     Route: 048
     Dates: end: 20211022
  2. RISPERIDONE [Concomitant]
     Active Substance: RISPERIDONE
     Route: 048
     Dates: start: 20211022, end: 20211024

REACTIONS (6)
  - Renal impairment [Unknown]
  - Depressed level of consciousness [Unknown]
  - Seizure [Unknown]
  - Inappropriate schedule of product administration [Unknown]
  - Contraindication to medical treatment [Unknown]
  - Off label use [Unknown]

NARRATIVE: CASE EVENT DATE: 20211001
